FAERS Safety Report 8844222 (Version 4)
Quarter: 2013Q1

REPORT INFORMATION
  Report Type: Spontaneous
  Country: US (occurrence: US)
  Receive Date: 20121016
  Receipt Date: 20130225
  Transmission Date: 20140127
  Serious: No
  Sender: FDA-Public Use
  Company Number: US-PFIZER INC-2012252260

PATIENT
  Age: 77 Year
  Sex: Female
  Weight: 79.37 kg

DRUGS (8)
  1. REVATIO [Suspect]
     Indication: PULMONARY ARTERIAL HYPERTENSION
     Dosage: 20 MG, 3X/DAY
     Route: 048
     Dates: start: 201207
  2. OXYGEN [Concomitant]
     Dosage: UNK
  3. LEVOXYL [Concomitant]
     Indication: THYROID CANCER
     Dosage: 0.112 MG, 1X/DAY
  4. SPIRONOLACTONE [Concomitant]
     Dosage: 25 MG, 2X/DAY
  5. PANTOPRAZOLE [Concomitant]
     Indication: GASTROOESOPHAGEAL REFLUX DISEASE
     Dosage: 40 MG, 1X/DAY
  6. VENLAFAXINE [Concomitant]
     Indication: HOT FLUSH
     Dosage: 75 MG, 1X/DAY
  7. VENLAFAXINE [Concomitant]
     Indication: ANXIETY
  8. POTASSIUM [Concomitant]
     Dosage: 500 MG, 1X/DAY

REACTIONS (6)
  - Joint stiffness [Not Recovered/Not Resolved]
  - Myalgia [Unknown]
  - Arthralgia [Unknown]
  - Headache [Unknown]
  - Muscle tightness [Unknown]
  - Insomnia [Not Recovered/Not Resolved]
